FAERS Safety Report 22918328 (Version 2)
Quarter: 2023Q4

REPORT INFORMATION
  Report Type: Spontaneous
  Country: US (occurrence: US)
  Receive Date: 20230907
  Receipt Date: 20231018
  Transmission Date: 20240110
  Serious: No
  Sender: FDA-Public Use
  Company Number: US-GILEAD-2023-0642688

PATIENT
  Age: 84 Year
  Sex: Female

DRUGS (2)
  1. VEKLURY [Suspect]
     Active Substance: REMDESIVIR
     Indication: Coronavirus infection
     Dosage: 1ST DOSE
     Route: 065
     Dates: start: 20230905
  2. VEKLURY [Suspect]
     Active Substance: REMDESIVIR
     Dosage: 2ND DOSE
     Route: 065
     Dates: start: 20230906

REACTIONS (1)
  - Extravasation [Unknown]

NARRATIVE: CASE EVENT DATE: 20230906
